FAERS Safety Report 13151210 (Version 3)
Quarter: 2018Q2

REPORT INFORMATION
  Report Type: Spontaneous
  Country: US (occurrence: US)
  Receive Date: 20170125
  Receipt Date: 20180403
  Transmission Date: 20180711
  Serious: Yes (Hospitalization)
  Sender: FDA-Public Use
  Company Number: US-SA-2017SA010946

PATIENT
  Age: 68 Year
  Sex: Male
  Weight: 124.7 kg

DRUGS (4)
  1. LANTUS SOLOSTAR [Suspect]
     Active Substance: INSULIN GLARGINE
     Indication: TYPE 2 DIABETES MELLITUS
     Dosage: DOSE IS 16 UNITS IN THE MORNING AND 30 UNITS IN THE EVENING
     Route: 051
     Dates: start: 2015
  2. LANTUS SOLOSTAR [Suspect]
     Active Substance: INSULIN GLARGINE
     Indication: TYPE 2 DIABETES MELLITUS
     Dosage: DOSE IS 16 UNITS IN THE MORNING AND 30 UNITS IN THE EVENING
     Route: 051
     Dates: start: 2015
  3. SOLOSTAR [Suspect]
     Active Substance: DEVICE
     Indication: TYPE 2 DIABETES MELLITUS
     Dates: start: 2015
  4. SOLOSTAR [Suspect]
     Active Substance: DEVICE
     Indication: TYPE 2 DIABETES MELLITUS
     Dates: start: 2015

REACTIONS (10)
  - Joint swelling [Unknown]
  - Arthralgia [Unknown]
  - Insulin resistance [Unknown]
  - Leg amputation [Unknown]
  - Blood glucose increased [Not Recovered/Not Resolved]
  - Visual impairment [Unknown]
  - Product use issue [Unknown]
  - Purulent discharge [Unknown]
  - Osteomyelitis [Unknown]
  - Feeling abnormal [Not Recovered/Not Resolved]

NARRATIVE: CASE EVENT DATE: 2015
